FAERS Safety Report 12942816 (Version 2)
Quarter: 2016Q4

REPORT INFORMATION
  Report Type: Spontaneous
  Country: ES (occurrence: ES)
  Receive Date: 20161114
  Receipt Date: 20161119
  Transmission Date: 20170207
  Serious: Yes (Disabling, Other)
  Sender: FDA-Public Use
  Company Number: ES-AMGEN-ESPSP2016156901

PATIENT
  Sex: Female

DRUGS (1)
  1. PROLIA [Suspect]
     Active Substance: DENOSUMAB
     Indication: OSTEOPOROSIS POSTMENOPAUSAL
     Dosage: UNK
     Route: 065
     Dates: start: 2013

REACTIONS (9)
  - Arthralgia [Unknown]
  - Dyspnoea [Unknown]
  - Drug ineffective [Unknown]
  - Pyrexia [Unknown]
  - Disability [Unknown]
  - Drug intolerance [Unknown]
  - Bone density abnormal [Unknown]
  - Insomnia [Unknown]
  - Pain in extremity [Unknown]
